FAERS Safety Report 20718316 (Version 1)
Quarter: 2022Q2

REPORT INFORMATION
  Report Type: Spontaneous
  Country: US (occurrence: US)
  Receive Date: 20220418
  Receipt Date: 20220418
  Transmission Date: 20220721
  Serious: No
  Sender: FDA-Public Use
  Company Number: US-UROGEN PHARMA LTD.-2022-UGN-000023

PATIENT

DRUGS (2)
  1. JELMYTO [Suspect]
     Active Substance: MITOMYCIN
     Indication: Transitional cell cancer of the renal pelvis and ureter
     Dosage: 1 MILLIGRAM (INSTILLATION), EVERY TWO WEEKS
     Dates: start: 20220228, end: 20220228
  2. JELMYTO [Suspect]
     Active Substance: MITOMYCIN
     Dosage: EVERY TWO WEEKS (INSTILLATION)
     Dates: start: 20220314, end: 20220314

REACTIONS (3)
  - Micturition urgency [Recovering/Resolving]
  - Haematuria [Not Recovered/Not Resolved]
  - Dysuria [Recovered/Resolved]

NARRATIVE: CASE EVENT DATE: 20220228
